FAERS Safety Report 5739622-4 (Version None)
Quarter: 2008Q2

REPORT INFORMATION
  Report Type: 
  Country: None (occurrence: None)
  Receive Date: 20080515
  Receipt Date: 20080507
  Transmission Date: 20081010
  Serious: Yes (Life-Threatening)
  Sender: FDA-Public Use
  Company Number: CA-ABBOTT-08P-028-0451081-00

PATIENT
  Age: 56 Year
  Sex: Male
  Weight: 61.29 kg

DRUGS (3)
  1. HUMIRA [Suspect]
     Indication: RHEUMATOID ARTHRITIS
     Route: 058
     Dates: start: 20070607, end: 20080208
  2. LEFLUNOMIDE [Concomitant]
     Indication: RHEUMATOID ARTHRITIS
     Route: 048
  3. MORPHINE [Concomitant]
     Indication: PAIN
     Route: 048

REACTIONS (1)
  - ADENOCARCINOMA PANCREAS [None]
